FAERS Safety Report 6104426-X (Version None)
Quarter: 2009Q1

REPORT INFORMATION
  Report Type: 
  Country: None (occurrence: None)
  Receive Date: 20090227
  Receipt Date: 20081119
  Transmission Date: 20090719
  Serious: Yes (Hospitalization, Other)
  Sender: FDA-Public Use
  Company Number: RB-6395-2008

PATIENT
  Age: 54 Year
  Sex: Male

DRUGS (2)
  1. SUBOXONE [Suspect]
     Indication: DRUG DEPENDENCE
     Dosage: 8 MG BID SUBLINGUAL
     Route: 060
     Dates: start: 20081105
  2. SEROQUEL [Concomitant]

REACTIONS (4)
  - ANGIOEDEMA [None]
  - HYPERTENSION [None]
  - OEDEMA [None]
  - TACHYCARDIA [None]
